FAERS Safety Report 7447194-1 (Version None)
Quarter: 2011Q2

REPORT INFORMATION
  Report Type: 
  Country: None (occurrence: None)
  Receive Date: 20110429
  Receipt Date: 20101207
  Transmission Date: 20111010
  Serious: No
  Sender: FDA-Public Use
  Company Number: US-ASTRAZENECA-2010SE58036

PATIENT
  Age: 49 Year
  Sex: Male

DRUGS (3)
  1. RANITIDINE [Concomitant]
  2. NEXIUM [Suspect]
     Indication: GASTROOESOPHAGEAL REFLUX DISEASE
     Route: 048
     Dates: start: 20101101
  3. METFORMIN HCL [Concomitant]

REACTIONS (2)
  - RASH PRURITIC [None]
  - DIABETES MELLITUS [None]
